FAERS Safety Report 5320435-2 (Version None)
Quarter: 2007Q2

REPORT INFORMATION
  Report Type: 
  Country: None (occurrence: None)
  Receive Date: 20070509
  Receipt Date: 20070503
  Transmission Date: 20071010
  Serious: Yes (Death, Other)
  Sender: FDA-Public Use
  Company Number: GBWYE580903MAY07

PATIENT
  Age: 31 Year
  Sex: Male

DRUGS (6)
  1. VENLAFAXIINE HCL [Suspect]
     Indication: DEPRESSION
     Route: 048
  2. SALBUTAMOL [Concomitant]
     Indication: ASTHMA
     Route: 055
  3. BECLOMETHASONE DIPROPIONATE [Concomitant]
     Indication: ASTHMA
     Route: 055
  4. DIHYDROCODEINE BITARTRATE INJ [Concomitant]
     Indication: CHEST PAIN
     Dosage: UNKNOWN
     Route: 048
  5. CLOZARIL [Suspect]
     Indication: SCHIZOPHRENIA
     Route: 048
     Dates: start: 20060329
  6. RANITIDINE [Suspect]
     Indication: DYSPEPSIA
     Route: 048

REACTIONS (6)
  - DEATH [None]
  - LOWER RESPIRATORY TRACT INFECTION [None]
  - MALAISE [None]
  - MYALGIA [None]
  - PLEURISY [None]
  - PNEUMONIA [None]
